FAERS Safety Report 24153971 (Version 2)
Quarter: 2024Q3

REPORT INFORMATION
  Report Type: Spontaneous
  Country: UA (occurrence: UA)
  Receive Date: 20240730
  Receipt Date: 20240809
  Transmission Date: 20241016
  Serious: Yes (Hospitalization)
  Sender: TEVA
  Company Number: UA-TEVA-VS-3223269

PATIENT
  Age: 22 Month
  Sex: Male

DRUGS (16)
  1. METHOTREXATE [Suspect]
     Active Substance: METHOTREXATE
     Indication: Prophylaxis against graft versus host disease
     Dosage: RECEIVED ON DAYS +1, +3 AND +6 OF TRANSPLANTATION
     Route: 042
  2. Immunoglobulin [Concomitant]
     Indication: Combined immunodeficiency
     Route: 042
  3. CYCLOSPORINE [Suspect]
     Active Substance: CYCLOSPORINE
     Indication: Prophylaxis against graft versus host disease
     Dosage: RECEIVED INFUSION FROM DAY -1 OF TRANSPLANTATION
     Route: 065
  4. BUDESONIDE [Suspect]
     Active Substance: BUDESONIDE
     Indication: Acute graft versus host disease
     Route: 048
  5. IRON [Concomitant]
     Active Substance: IRON
     Indication: Deficiency anaemia
     Route: 051
  6. VORICONAZOLE [Concomitant]
     Active Substance: VORICONAZOLE
     Indication: Antifungal treatment
     Route: 065
  7. MYCOPHENOLATE MOFETIL [Suspect]
     Active Substance: MYCOPHENOLATE MOFETIL
     Indication: Acute graft versus host disease
     Route: 065
  8. MEROPENEM [Concomitant]
     Active Substance: MEROPENEM
     Indication: Antibiotic therapy
     Route: 065
  9. THYMOCYTE IMMUNE GLOBULIN NOS [Concomitant]
     Active Substance: THYMOCYTE IMMUNE GLOBULIN NOS
     Indication: Bone marrow conditioning regimen
     Dosage: RECEIVED ON DAYS -8, -7, -6, -5, AND -4 OF TRANSPLANT
  10. ERYTHROPOIETIN [Concomitant]
     Active Substance: ERYTHROPOIETIN
     Indication: Deficiency anaemia
     Route: 065
  11. THIOTEPA [Concomitant]
     Active Substance: THIOTEPA
     Indication: Bone marrow conditioning regimen
     Dosage: RECEIVED ON DAYS -8, -7, -6, -5, AND -4 OF TRANSPLANT
     Route: 065
  12. METHYLPREDNISOLONE [Suspect]
     Active Substance: METHYLPREDNISOLONE
     Indication: Acute graft versus host disease
     Route: 065
  13. FLUDARABINE [Concomitant]
     Active Substance: FLUDARABINE PHOSPHATE
     Indication: Bone marrow conditioning regimen
     Dosage: RECEIVED ON DAYS -8, -7, -6, -5, AND -4 OF TRANSPLANT
     Route: 065
  14. TREOSULFAN [Concomitant]
     Active Substance: TREOSULFAN
     Indication: Bone marrow conditioning regimen
     Dosage: RECEIVED ON DAYS -8, -7, -6, -5, AND -4 OF TRANSPLANT
     Route: 065
  15. CYCLOSPORINE [Suspect]
     Active Substance: CYCLOSPORINE
     Indication: Acute graft versus host disease
     Route: 065
  16. RITUXIMAB [Concomitant]
     Active Substance: RITUXIMAB
     Indication: Bone marrow conditioning regimen
     Dosage: RECEIVED ON DAYS -8, -7, -6, -5, AND -4 OF TRANSPLANT
     Route: 065

REACTIONS (4)
  - Steroid dependence [Unknown]
  - Steroid withdrawal syndrome [Unknown]
  - Obesity [Unknown]
  - Drug ineffective [Unknown]
